FAERS Safety Report 16450029 (Version 3)
Quarter: 2019Q3

REPORT INFORMATION
  Report Type: Spontaneous
  Country: IT (occurrence: IT)
  Receive Date: 20190619
  Receipt Date: 20190715
  Transmission Date: 20191004
  Serious: Yes (Other)
  Sender: FDA-Public Use
  Company Number: IT-SA-2019SA162083

PATIENT
  Age: 44 Year
  Sex: Female

DRUGS (2)
  1. LEMTRADA [Suspect]
     Active Substance: ALEMTUZUMAB
     Indication: MULTIPLE SCLEROSIS
     Dosage: 60 MG; CYCLICAL
     Route: 041
     Dates: start: 20160523, end: 20160527
  2. LEMTRADA [Suspect]
     Active Substance: ALEMTUZUMAB
     Dosage: 36 MG; CYCLICAL
     Route: 041
     Dates: start: 20170510, end: 20170512

REACTIONS (7)
  - Intracranial aneurysm [Not Recovered/Not Resolved]
  - Headache [Not Recovered/Not Resolved]
  - Insomnia [Unknown]
  - Tachycardia [Unknown]
  - Basedow^s disease [Unknown]
  - Hormone level abnormal [Unknown]
  - Agitation [Unknown]

NARRATIVE: CASE EVENT DATE: 201808
